FAERS Safety Report 8511898-X (Version None)
Quarter: 2012Q3

REPORT INFORMATION
  Report Type: 
  Country: None (occurrence: None)
  Receive Date: 20120716
  Receipt Date: 20120706
  Transmission Date: 20120928
  Serious: Yes (Hospitalization, Disabling)
  Sender: FDA-Public Use
  Company Number: RS-PFIZER INC-2012168072

PATIENT
  Age: 55 Year
  Sex: Male
  Weight: 75 kg

DRUGS (6)
  1. PANTOPRAZOLE [Suspect]
     Indication: SECRETION DISCHARGE
  2. PANTOPRAZOLE [Suspect]
     Indication: GASTRINOMA
  3. PANTOPRAZOLE [Suspect]
     Indication: GASTROOESOPHAGEAL REFLUX DISEASE
     Dosage: 40 MG, 1X/DAY
     Dates: start: 20120531, end: 20120606
  4. NOVALGETOL [Concomitant]
  5. PANTOPRAZOLE [Suspect]
     Indication: GASTRODUODENAL ULCER
  6. RANISAN [Concomitant]
     Dosage: UNK
     Route: 042
     Dates: start: 20120529, end: 20120531

REACTIONS (1)
  - BLINDNESS [None]
